FAERS Safety Report 10742355 (Version 1)
Quarter: 2015Q1

REPORT INFORMATION
  Report Type: Spontaneous
  Country: US (occurrence: None)
  Receive Date: 20150123
  Receipt Date: 20150123
  Transmission Date: 20150721
  Serious: Yes (Life-Threatening, Hospitalization)
  Sender: FDA-Public Use
  Company Number: None

PATIENT
  Age: 42 Year
  Sex: Female
  Weight: 117.94 kg

DRUGS (1)
  1. PRAMIPEXOLE DIHYDROCHLORIDE 0.125 GLENMARK [Suspect]
     Active Substance: PRAMIPEXOLE DIHYDROCHLORIDE
     Indication: RESTLESS LEGS SYNDROME
     Dosage: AT BEDTIME
     Route: 048
     Dates: start: 20141031, end: 20141111

REACTIONS (9)
  - Syncope [None]
  - Fatigue [None]
  - Pain [None]
  - Road traffic accident [None]
  - Loss of consciousness [None]
  - Soft tissue injury [None]
  - Spinal fracture [None]
  - Haemorrhage [None]
  - Facial bones fracture [None]

NARRATIVE: CASE EVENT DATE: 20141112
